FAERS Safety Report 22084992 (Version 1)
Quarter: 2023Q1

REPORT INFORMATION
  Report Type: Spontaneous
  Country: US (occurrence: US)
  Receive Date: 20230310
  Receipt Date: 20230310
  Transmission Date: 20230417
  Serious: No
  Sender: FDA-Public Use
  Company Number: US-PFIZER INC-PV202300045595

PATIENT
  Age: 67 Year
  Sex: Male

DRUGS (26)
  1. ZOSYN [Suspect]
     Active Substance: PIPERACILLIN SODIUM\TAZOBACTAM SODIUM
     Dosage: UNK
  2. BACTRIM DS [Concomitant]
     Active Substance: SULFAMETHOXAZOLE\TRIMETHOPRIM
     Dosage: UNK
  3. MORNIFLUMATE [Concomitant]
     Active Substance: MORNIFLUMATE
     Dosage: UNK
  4. JAKAFI [Concomitant]
     Active Substance: RUXOLITINIB
     Dosage: UNK
  5. LEVAQUIN [Concomitant]
     Active Substance: LEVOFLOXACIN
     Dosage: UNK
  6. NORVASC [Concomitant]
     Active Substance: AMLODIPINE BESYLATE
     Dosage: UNK
  7. VALTREX [Concomitant]
     Active Substance: VALACYCLOVIR HYDROCHLORIDE
     Dosage: UNK
  8. VENCLEXTA [Concomitant]
     Active Substance: VENETOCLAX
     Dosage: UNK
  9. ZOFRAN [Concomitant]
     Active Substance: ONDANSETRON HYDROCHLORIDE
     Dosage: UNK
  10. ACYCLOVIR [Concomitant]
     Active Substance: ACYCLOVIR
     Dosage: UNK
  11. ALLOPURINOL [Concomitant]
     Active Substance: ALLOPURINOL
     Dosage: UNK
  12. AZACITIDINE [Concomitant]
     Active Substance: AZACITIDINE
     Dosage: UNK
  13. B-COMPLEX [VITAMIN B COMPLEX] [Concomitant]
     Dosage: UNK
  14. FERROUS SULFATE [Concomitant]
     Active Substance: FERROUS SULFATE
     Dosage: UNK
  15. FISH OIL [Concomitant]
     Active Substance: FISH OIL
     Dosage: UNK
  16. FLUCONAZOLE [Concomitant]
     Active Substance: FLUCONAZOLE
     Dosage: UNK
  17. GLYCERIN [Concomitant]
     Active Substance: GLYCERIN
     Dosage: UNK
  18. LEVOFLOXACIN [Concomitant]
     Active Substance: LEVOFLOXACIN
     Dosage: UNK
  19. MAGNESIUM [Concomitant]
     Active Substance: MAGNESIUM
     Dosage: UNK
  20. PANTOPRAZOLE [Concomitant]
     Active Substance: PANTOPRAZOLE
     Dosage: UNK
  21. PREDNISONE [Concomitant]
     Active Substance: PREDNISONE
     Dosage: UNK
  22. POSACONAZOLE [Concomitant]
     Active Substance: POSACONAZOLE
     Dosage: UNK
  23. SODIUM CHLORIDE [Concomitant]
     Active Substance: SODIUM CHLORIDE
     Dosage: UNK
  24. TACROLIMUS [Concomitant]
     Active Substance: TACROLIMUS
     Dosage: UNK
  25. URSODIOL [Concomitant]
     Active Substance: URSODIOL
     Dosage: UNK
  26. VITAMIN B12 W/VITAMIN B6/FOLIC ACID [Concomitant]
     Dosage: UNK

REACTIONS (1)
  - Rash [Unknown]
